FAERS Safety Report 20598805 (Version 1)
Quarter: 2022Q1

REPORT INFORMATION
  Report Type: Report from Study
  Country: FR (occurrence: FR)
  Receive Date: 20220315
  Receipt Date: 20220315
  Transmission Date: 20220423
  Serious: Yes (Hospitalization, Other)
  Sender: FDA-Public Use
  Company Number: FR-GILEAD-2019-0415185

PATIENT
  Age: 56 Year
  Sex: Male
  Weight: 64 kg

DRUGS (14)
  1. AXICABTAGENE CILOLEUCEL [Suspect]
     Active Substance: AXICABTAGENE CILOLEUCEL
     Indication: Diffuse large B-cell lymphoma
     Dosage: ^2 X 10^6 CELL^
     Route: 042
     Dates: start: 20181211, end: 20181211
  2. CYCLOPHOSPHAMIDE [Concomitant]
     Active Substance: CYCLOPHOSPHAMIDE
     Indication: Chemotherapy
     Dosage: UNK
     Dates: start: 20181206, end: 20181209
  3. FLUDARABINE [Concomitant]
     Active Substance: FLUDARABINE PHOSPHATE
     Indication: Chemotherapy
     Dosage: UNK
     Dates: start: 20181206, end: 20181209
  4. BARACLUDE [Concomitant]
     Active Substance: ENTECAVIR
     Indication: Prophylaxis
     Dosage: UNK
     Dates: start: 20181031
  5. VALACYCLOVIR HYDROCHLORIDE [Concomitant]
     Active Substance: VALACYCLOVIR HYDROCHLORIDE
     Indication: Prophylaxis
     Dosage: UNK
     Dates: start: 20181030
  6. BACTRIM [Concomitant]
     Active Substance: SULFAMETHOXAZOLE\TRIMETHOPRIM
  7. NOPRAL [Concomitant]
  8. ATOVAQUONE [Concomitant]
     Active Substance: ATOVAQUONE
     Indication: Prophylaxis
     Dosage: UNK
     Dates: start: 20181030
  9. ACETAMINOPHEN [Concomitant]
     Active Substance: ACETAMINOPHEN
     Dosage: UNK
     Dates: start: 20181211
  10. DIPHENHYDRAMINE [Concomitant]
     Active Substance: DIPHENHYDRAMINE
     Dosage: UNK
     Dates: start: 20181211
  11. INNOHEP [Concomitant]
     Active Substance: TINZAPARIN SODIUM
  12. POTASSIUM CHLORIDE [Concomitant]
     Active Substance: POTASSIUM CHLORIDE
  13. TRAMADOL [Concomitant]
     Active Substance: TRAMADOL
  14. OXAZEPAM [Concomitant]
     Active Substance: OXAZEPAM

REACTIONS (11)
  - Bone marrow failure [Recovering/Resolving]
  - Cytomegalovirus infection reactivation [Recovering/Resolving]
  - Pleural effusion [Recovered/Resolved]
  - Cell-mediated cytotoxicity [Recovering/Resolving]
  - Cytokine release syndrome [Recovered/Resolved]
  - Lung disorder [Recovered/Resolved]
  - BK virus infection [Unknown]
  - Pulmonary embolism [Recovered/Resolved]
  - Chylothorax [Recovered/Resolved]
  - Escherichia infection [Recovered/Resolved]
  - Vascular device infection [Recovered/Resolved]

NARRATIVE: CASE EVENT DATE: 20181215
